FAERS Safety Report 8169970-2 (Version None)
Quarter: 2012Q1

REPORT INFORMATION
  Report Type: 
  Country: None (occurrence: None)
  Receive Date: 20120228
  Receipt Date: 20120228
  Transmission Date: 20120608
  Serious: Yes (Hospitalization)
  Sender: FDA-Public Use
  Company Number: None

PATIENT
  Age: 44 Year
  Sex: Female

DRUGS (1)
  1. HUMIRA [Suspect]
     Indication: COLITIS ULCERATIVE
     Dosage: 40MG
     Route: 058
     Dates: start: 20110810, end: 20111128

REACTIONS (4)
  - JOINT SWELLING [None]
  - SWELLING [None]
  - ARTHRALGIA [None]
  - APHAGIA [None]
